FAERS Safety Report 5897989-0 (Version None)
Quarter: 2008Q3

REPORT INFORMATION
  Report Type: 
  Country: None (occurrence: None)
  Receive Date: 20080925
  Receipt Date: 20080918
  Transmission Date: 20090109
  Serious: Yes (Life-Threatening, Hospitalization, Disabling)
  Sender: FDA-Public Use
  Company Number: GB-TEVA-177675ISR

PATIENT
  Age: 31 Year
  Sex: Female
  Weight: 80 kg

DRUGS (2)
  1. CITALOPRAM HYDROBROMIDE [Suspect]
     Indication: DEPRESSION
     Route: 048
     Dates: end: 20080826
  2. CITALOPRAM HYDROBROMIDE [Suspect]
     Route: 048

REACTIONS (1)
  - HAEMORRHAGE INTRACRANIAL [None]
